FAERS Safety Report 5442379-8 (Version None)
Quarter: 2007Q3

REPORT INFORMATION
  Report Type: 
  Country: None (occurrence: None)
  Receive Date: 20070904
  Receipt Date: 20070823
  Transmission Date: 20080115
  Serious: Yes (Other)
  Sender: FDA-Public Use
  Company Number: US-PFIZER INC-2007071460

PATIENT
  Sex: Female
  Weight: 52.272 kg

DRUGS (9)
  1. CHANTIX [Suspect]
     Indication: SMOKING CESSATION THERAPY
  2. DEPAKOTE [Concomitant]
  3. LISINOPRIL [Concomitant]
  4. LIPITOR [Concomitant]
  5. TIMOLOL MALEATE [Concomitant]
  6. XALATAN [Concomitant]
  7. ALPHAGAN [Concomitant]
  8. LUMIGAN [Concomitant]
  9. HUMALOG [Concomitant]

REACTIONS (3)
  - BIPOLAR DISORDER [None]
  - DEPRESSION [None]
  - STRESS [None]
